FAERS Safety Report 7907751-2 (Version None)
Quarter: 2011Q4

REPORT INFORMATION
  Report Type: 
  Country: None (occurrence: None)
  Receive Date: 20111110
  Receipt Date: 20111103
  Transmission Date: 20120403
  Serious: Yes (Other)
  Sender: FDA-Public Use
  Company Number: CH-US-EMD SERONO, INC.-7094604

PATIENT
  Sex: Female
  Weight: 62 kg

DRUGS (4)
  1. CONTRA-SCHMERZ [Concomitant]
     Indication: HEADACHE
     Route: 048
  2. REBIF [Suspect]
     Indication: MULTIPLE SCLEROSIS
     Route: 058
     Dates: start: 20020410
  3. ACETAMINOPHEN [Concomitant]
     Indication: HEADACHE
     Dosage: 1 TB AS NEEDED
     Route: 048
     Dates: start: 20020101
  4. MAXALT [Concomitant]
     Indication: MIGRAINE
     Route: 048
     Dates: start: 20080401

REACTIONS (2)
  - VOMITING [None]
  - LOSS OF CONSCIOUSNESS [None]
